FAERS Safety Report 9317000 (Version 1)
Quarter: 2013Q2

REPORT INFORMATION
  Report Type: Spontaneous
  Country: US (occurrence: US)
  Receive Date: 20130530
  Receipt Date: 20130530
  Transmission Date: 20140414
  Serious: No
  Sender: FDA-Public Use
  Company Number: US-NOVEN-12US004691

PATIENT
  Age: 10 Year
  Sex: Male
  Weight: 27.21 kg

DRUGS (3)
  1. DAYTRANA [Suspect]
     Indication: ATTENTION DEFICIT/HYPERACTIVITY DISORDER
     Dosage: 30 MG, UNK
     Route: 062
     Dates: start: 201203
  2. KAVERI [Concomitant]
     Indication: ATTENTION DEFICIT/HYPERACTIVITY DISORDER
     Dosage: 0.1 MG, BID
     Route: 048
  3. CELEXA                             /00582602/ [Concomitant]
     Indication: ANXIETY
     Dosage: 0.5 MG OF A 10 MG TAB, QD
     Route: 048

REACTIONS (3)
  - Psychomotor hyperactivity [Not Recovered/Not Resolved]
  - Drug dose omission [Not Recovered/Not Resolved]
  - Incorrect drug administration duration [Not Recovered/Not Resolved]
